FAERS Safety Report 9036227 (Version 1)
Quarter: 2013Q1

REPORT INFORMATION
  Report Type: Spontaneous
  Country: US (occurrence: None)
  Receive Date: 20130117
  Receipt Date: 20130117
  Transmission Date: 20140127
  Serious: No
  Sender: FDA-Public Use
  Company Number: None

PATIENT
  Age: 74 Year
  Sex: Male

DRUGS (22)
  1. HYDRALAZINE [Suspect]
     Indication: SKIN ULCER
     Dates: start: 20110107, end: 20110113
  2. TIGECYCLINE [Suspect]
     Indication: SKIN ULCER
     Dates: start: 20120105, end: 20120112
  3. BACTRIM [Suspect]
     Indication: SKIN ULCER
     Dates: start: 20101201, end: 20101217
  4. LISINOPRIL [Concomitant]
  5. IRON SUPP [Concomitant]
  6. OXYCODONE [Concomitant]
  7. ACIDOPHILUS [Concomitant]
  8. GLIPIZIDE [Concomitant]
  9. FUROSEMIDE [Concomitant]
  10. CRESTOR [Concomitant]
  11. SAW PALMETTO [Concomitant]
  12. MULTIVITAMIN [Concomitant]
  13. PROSCAR [Concomitant]
  14. FLOMAX [Concomitant]
  15. ASPIRIN [Concomitant]
  16. COZAAR [Concomitant]
  17. LOVENOX [Concomitant]
  18. HYDRALAZINE [Concomitant]
  19. TYLENOL [Concomitant]
  20. COUMADIN [Concomitant]
  21. INSULIN LISPRO [Concomitant]
  22. HEPARIN [Concomitant]

REACTIONS (8)
  - Jaundice [None]
  - Pruritus [None]
  - Aspartate aminotransferase increased [None]
  - Alanine aminotransferase increased [None]
  - Blood alkaline phosphatase increased [None]
  - Blood bilirubin increased [None]
  - Drug-induced liver injury [None]
  - Toe amputation [None]
